FAERS Safety Report 9545623 (Version 1)
Quarter: 2013Q3

REPORT INFORMATION
  Report Type: Spontaneous
  Country: US (occurrence: US)
  Receive Date: 20130923
  Receipt Date: 20130923
  Transmission Date: 20140515
  Serious: No
  Sender: FDA-Public Use
  Company Number: US-GLAXOSMITHKLINE-A1010909A

PATIENT
  Age: 76 Year
  Sex: Male

DRUGS (2)
  1. ABREVA [Suspect]
     Indication: ORAL HERPES
  2. ANTISEPTIC CREAM [Concomitant]

REACTIONS (6)
  - Oral herpes [Not Recovered/Not Resolved]
  - Condition aggravated [Not Recovered/Not Resolved]
  - Drug ineffective [Unknown]
  - Cheilitis [Not Recovered/Not Resolved]
  - Lip haemorrhage [Not Recovered/Not Resolved]
  - Drug administration error [Unknown]
